FAERS Safety Report 5112531-X (Version None)
Quarter: 2006Q3

REPORT INFORMATION
  Report Type: 
  Country: None (occurrence: None)
  Receive Date: 20060922
  Receipt Date: 20031110
  Transmission Date: 20061208
  Serious: No
  Sender: FDA-Public Use
  Company Number: US-GLAXOSMITHKLINE-A0532446A

PATIENT

DRUGS (1)
  1. ABREVA [Suspect]
     Indication: DRUG USE FOR UNKNOWN INDICATION

REACTIONS (4)
  - EYE PAIN [None]
  - FACIAL PAIN [None]
  - INFECTION [None]
  - NONSPECIFIC REACTION [None]
